FAERS Safety Report 17910907 (Version 1)
Quarter: 2020Q2

REPORT INFORMATION
  Report Type: Spontaneous
  Country: US (occurrence: US)
  Receive Date: 20200617
  Receipt Date: 20200617
  Transmission Date: 20200714
  Serious: No
  Sender: FDA-Public Use
  Company Number: None

PATIENT
  Age: 47 Year
  Sex: 0
  Weight: 104.8 kg

DRUGS (7)
  1. HEPARIN 5000 UNITS SUBQ Q 8 HOURS [Concomitant]
     Dates: start: 20200615, end: 20200617
  2. DULOXETINE 60 MG PO DAILY [Concomitant]
     Dates: start: 20200614, end: 20200615
  3. COLACE 100 MG PO DAILY [Concomitant]
     Dates: start: 20200614
  4. ZOSYN 2.25 G Q 6 HOURS [Concomitant]
     Dates: start: 20200614, end: 20200617
  5. REMDESIVIR. [Suspect]
     Active Substance: REMDESIVIR
     Indication: COVID-19
     Dosage: ?          OTHER FREQUENCY:X 1 DOSE;?
     Route: 042
     Dates: start: 20200614, end: 20200617
  6. CONVALESCENT PLASMA [Concomitant]
     Active Substance: HUMAN PLASMA
     Dates: start: 20200615, end: 20200615
  7. CULTURELLE 1 PO DAILY [Concomitant]
     Dates: start: 20200612

REACTIONS (1)
  - Blood creatinine increased [None]

NARRATIVE: CASE EVENT DATE: 20200615
